FAERS Safety Report 15861422 (Version 1)
Quarter: 2019Q1

REPORT INFORMATION
  Report Type: Spontaneous
  Country: DE (occurrence: DE)
  Receive Date: 20190124
  Receipt Date: 20190124
  Transmission Date: 20190417
  Serious: Yes (Other)
  Sender: FDA-Public Use
  Company Number: DE-TEVA-2019-DE-1002256

PATIENT
  Age: 60 Year
  Sex: Male
  Weight: 86 kg

DRUGS (2)
  1. METHOTREXATE. [Suspect]
     Active Substance: METHOTREXATE
     Indication: PSORIASIS
     Route: 065
  2. DICLOFENAC-NATRIUM [Interacting]
     Active Substance: DICLOFENAC SODIUM
     Indication: ARTHRALGIA
     Route: 065

REACTIONS (6)
  - Gingivitis ulcerative [Unknown]
  - Mucosal erosion [Unknown]
  - Skin lesion [Unknown]
  - Toxicity to various agents [Unknown]
  - Drug interaction [Unknown]
  - Bone marrow failure [Unknown]
